FAERS Safety Report 11831692 (Version 3)
Quarter: 2016Q1

REPORT INFORMATION
  Report Type: Spontaneous
  Country: US (occurrence: US)
  Receive Date: 20151214
  Receipt Date: 20160215
  Transmission Date: 20160525
  Serious: No
  Sender: FDA-Public Use
  Company Number: US-ROXANE LABORATORIES, INC.-2015-RO-02085RO

PATIENT
  Sex: Female
  Weight: 48 kg

DRUGS (4)
  1. HUMIRA [Concomitant]
     Active Substance: ADALIMUMAB
     Route: 065
  2. CYCLOSPROINE [Concomitant]
     Route: 065
  3. PREDNISONE TABLETS USP, 5MG [Suspect]
     Active Substance: PREDNISONE
     Indication: PYODERMA GANGRENOSUM
     Route: 065
  4. NEORAL [Concomitant]
     Active Substance: CYCLOSPORINE
     Indication: PYODERMA GANGRENOSUM
     Dosage: 100 MG
     Route: 065
     Dates: start: 20151020

REACTIONS (3)
  - Drug ineffective [Unknown]
  - Product quality issue [Unknown]
  - Mental disorder [Unknown]
